FAERS Safety Report 5800309-0 (Version None)
Quarter: 2008Q3

REPORT INFORMATION
  Report Type: 
  Country: None (occurrence: None)
  Receive Date: 20080702
  Receipt Date: 20080702
  Transmission Date: 20090109
  Serious: Yes (Death)
  Sender: FDA-Public Use
  Company Number: None

PATIENT
  Age: 86 Year
  Sex: Male

DRUGS (2)
  1. DIGITEK .25MG [Suspect]
     Indication: CARDIAC FAILURE CONGESTIVE
     Dosage: ONE EVERY OTHER DAY
  2. DIGITEK .25MG [Suspect]
     Indication: HEART RATE IRREGULAR
     Dosage: ONE EVERY OTHER DAY

REACTIONS (2)
  - FALL [None]
  - HAEMATOMA [None]
